FAERS Safety Report 5255895-9 (Version None)
Quarter: 2007Q1

REPORT INFORMATION
  Report Type: 
  Country: None (occurrence: None)
  Receive Date: 20070305
  Receipt Date: 20070227
  Transmission Date: 20070707
  Serious: Yes (Death, Hospitalization)
  Sender: FDA-Public Use
  Company Number: US-ABBOTT-07P-163-0359496-00

PATIENT
  Sex: Male
  Weight: 71.2 kg

DRUGS (12)
  1. K-TAB [Suspect]
     Indication: MINERAL SUPPLEMENTATION
  2. DABIGATRAN ETEXILATE [Suspect]
     Indication: DRUG USE FOR UNKNOWN INDICATION
     Dates: start: 20041011, end: 20060923
  3. DABIGATRAN ETEXILATE [Suspect]
     Dates: start: 20060925, end: 20060927
  4. DIOVAN [Suspect]
     Indication: HYPERTENSION
     Dates: end: 20060927
  5. DILTIAZEM HYDROCHLORIDE [Suspect]
     Indication: HYPERTENSION
     Dates: end: 20060927
  6. AMLODIPINE BESYLATE [Suspect]
     Indication: HYPERTENSION
     Dates: end: 20060927
  7. GLUCOPHAGE [Concomitant]
     Indication: DRUG USE FOR UNKNOWN INDICATION
  8. PREDNISONE [Concomitant]
     Indication: DRUG USE FOR UNKNOWN INDICATION
  9. ATENOLOL [Concomitant]
     Indication: DRUG USE FOR UNKNOWN INDICATION
  10. ATORVASTATIN [Concomitant]
     Indication: DRUG USE FOR UNKNOWN INDICATION
  11. NAPROXEN SODIUM [Concomitant]
     Indication: DRUG USE FOR UNKNOWN INDICATION
  12. TORSEMIDE [Concomitant]
     Indication: DRUG USE FOR UNKNOWN INDICATION

REACTIONS (12)
  - ABDOMINAL DISTENSION [None]
  - ABDOMINAL PAIN UPPER [None]
  - ASTHENIA [None]
  - BRADYCARDIA [None]
  - CARDIO-RESPIRATORY ARREST [None]
  - CHRONIC OBSTRUCTIVE PULMONARY DISEASE [None]
  - GALLBLADDER ENLARGEMENT [None]
  - GASTROINTESTINAL HAEMORRHAGE [None]
  - HYPOTENSION [None]
  - MUSCULOSKELETAL CHEST PAIN [None]
  - RENAL FAILURE ACUTE [None]
  - VOMITING [None]
